FAERS Safety Report 5004365-1 (Version None)
Quarter: 2006Q2

REPORT INFORMATION
  Report Type: 
  Country: None (occurrence: None)
  Receive Date: 20060517
  Receipt Date: 20060516
  Transmission Date: 20061013
  Serious: Yes (Hospitalization)
  Sender: FDA-Public Use
  Company Number: FR-GLAXOSMITHKLINE-B0423923A

PATIENT
  Age: 86 Year
  Sex: Female

DRUGS (1)
  1. CLAMOXYL [Suspect]
     Indication: DENTAL CARE
     Route: 048
     Dates: start: 20060406, end: 20060406

REACTIONS (12)
  - ALANINE AMINOTRANSFERASE INCREASED [None]
  - ASPARTATE AMINOTRANSFERASE INCREASED [None]
  - DRUG HYPERSENSITIVITY [None]
  - ERYTHEMA [None]
  - HYPERTHERMIA [None]
  - LEUKOCYTOSIS [None]
  - NORMOCHROMIC NORMOCYTIC ANAEMIA [None]
  - PYREXIA [None]
  - RASH [None]
  - RASH PUSTULAR [None]
  - RENAL FAILURE [None]
  - TOXIC SKIN ERUPTION [None]
